APPROVED DRUG PRODUCT: MESALAMINE
Active Ingredient: MESALAMINE
Strength: 375MG
Dosage Form/Route: CAPSULE, EXTENDED RELEASE;ORAL
Application: A209970 | Product #001
Applicant: TEVA PHARMACEUTICALS USA INC
Approved: May 6, 2022 | RLD: No | RS: No | Type: DISCN